FAERS Safety Report 8995919 (Version 1)
Quarter: 2013Q1

REPORT INFORMATION
  Report Type: Spontaneous
  Country: US (occurrence: US)
  Receive Date: 20130103
  Receipt Date: 20130103
  Transmission Date: 20140127
  Serious: Yes (Other)
  Sender: FDA-Public Use
  Company Number: US-BAYER-2013-000420

PATIENT
  Age: 3 Year
  Sex: Female
  Weight: 12 kg

DRUGS (2)
  1. ALKA-SELTZER PLUS COLD + COUGH [Suspect]
     Indication: NASOPHARYNGITIS
     Dosage: 1/2 DF, ONCE
     Route: 048
     Dates: start: 20121228
  2. CHILDREN^S MOTRIN [Concomitant]

REACTIONS (4)
  - Fall [Not Recovered/Not Resolved]
  - Off label use [None]
  - Vomiting [Not Recovered/Not Resolved]
  - Eye movement disorder [Not Recovered/Not Resolved]
